FAERS Safety Report 20912077 (Version 1)
Quarter: 2022Q2

REPORT INFORMATION
  Report Type: Report from Study
  Country: US (occurrence: US)
  Receive Date: 20220603
  Receipt Date: 20220603
  Transmission Date: 20220721
  Serious: Yes (Hospitalization)
  Sender: FDA-Public Use
  Company Number: US-JNJFOC-20220561878

PATIENT
  Age: 53 Year
  Sex: Female
  Weight: 78 kg

DRUGS (3)
  1. INVESTIGATIONAL PRODUCT [Suspect]
     Active Substance: INVESTIGATIONAL PRODUCT
     Indication: Product used for unknown indication
     Dosage: APPLIED TOPICALLY TO THE FACE
     Route: 061
     Dates: start: 20220408, end: 20220414
  2. NEUTROGENA OIL-FREE MOISTURE SPF 35 [Suspect]
     Active Substance: AVOBENZONE\HOMOSALATE\OCTISALATE\OCTOCRYLENE\OXYBENZONE
     Indication: Product used for unknown indication
     Dosage: APPLIED TOPICALLY TO THE FACE
     Route: 061
     Dates: start: 20220408, end: 20220414
  3. NEUTROGENA OIL-FREE MOISTURE SPF 35 [Suspect]
     Active Substance: AVOBENZONE\HOMOSALATE\OCTISALATE\OCTOCRYLENE\OXYBENZONE
     Indication: Product used for unknown indication
     Dosage: APPLIED TOPICALLY TO THE FACE
     Route: 061
     Dates: start: 20220408, end: 20220414

REACTIONS (1)
  - Skin infection [Recovered/Resolved]

NARRATIVE: CASE EVENT DATE: 20220413
